FAERS Safety Report 20208914 (Version 9)
Quarter: 2022Q1

REPORT INFORMATION
  Report Type: Report from Study
  Country: GB (occurrence: GB)
  Receive Date: 20211220
  Receipt Date: 20220314
  Transmission Date: 20220423
  Serious: Yes (Hospitalization, Other)
  Sender: FDA-Public Use
  Company Number: GB-SAMSUNG BIOEPIS-SB-2021-28055

PATIENT
  Age: 78 Year
  Sex: Female

DRUGS (5)
  1. METHOTREXATE SODIUM [Suspect]
     Active Substance: METHOTREXATE SODIUM
     Dosage: UNK
     Route: 065
  2. METHOTREXATE SODIUM [Suspect]
     Active Substance: METHOTREXATE SODIUM
     Dosage: 10 MG
     Route: 065
  3. METHOTREXATE SODIUM [Suspect]
     Active Substance: METHOTREXATE SODIUM
     Dosage: 20 MG
  4. ETANERCEPT [Suspect]
     Active Substance: ETANERCEPT
     Indication: Rheumatoid arthritis
     Dosage: 50 MG, WEEKLY
     Route: 058
     Dates: start: 20211102
  5. RITUXIMAB [Concomitant]
     Active Substance: RITUXIMAB

REACTIONS (13)
  - Lower respiratory tract infection [Unknown]
  - Immunosuppression [Unknown]
  - Diabetes mellitus [Unknown]
  - Hypertension [Unknown]
  - Urinary tract infection [Unknown]
  - Infection [Unknown]
  - Blood test abnormal [Unknown]
  - Chronic obstructive pulmonary disease [Unknown]
  - Rheumatoid arthritis [Unknown]
  - Injection site pain [Unknown]
  - Illness [Unknown]
  - Weight increased [Unknown]
  - Crying [Unknown]
